FAERS Safety Report 19691027 (Version 2)
Quarter: 2021Q4

REPORT INFORMATION
  Report Type: Spontaneous
  Country: US (occurrence: US)
  Receive Date: 20210812
  Receipt Date: 20211112
  Transmission Date: 20220303
  Serious: No
  Sender: FDA-Public Use
  Company Number: US-SUN PHARMACEUTICAL INDUSTRIES LTD-2021R1-304569

PATIENT
  Sex: Male
  Weight: 98.866 kg

DRUGS (4)
  1. EPOPROSTENOL [Suspect]
     Active Substance: EPOPROSTENOL
     Indication: Pulmonary arterial hypertension
     Dosage: 25 NG/KG/MIN, CONTINOUS
     Route: 042
     Dates: start: 20210331
  2. EPOPROSTENOL [Suspect]
     Active Substance: EPOPROSTENOL
     Dosage: 25 NG/KG/MIN, CONTINOUS
     Route: 042
     Dates: start: 20210331
  3. OPSUMIT [Concomitant]
     Active Substance: MACITENTAN
     Indication: Product used for unknown indication
     Route: 065
  4. VELETRI [Concomitant]
     Active Substance: EPOPROSTENOL
     Indication: Product used for unknown indication
     Route: 065

REACTIONS (7)
  - Dyspnoea [Unknown]
  - Pain in jaw [Unknown]
  - Flushing [Recovering/Resolving]
  - Photosensitivity reaction [Recovering/Resolving]
  - Cough [Unknown]
  - Chest pain [Unknown]
  - Fatigue [Unknown]
